FAERS Safety Report 10143085 (Version 2)
Quarter: 2014Q2

REPORT INFORMATION
  Report Type: Spontaneous
  Country: US (occurrence: US)
  Receive Date: 20140430
  Receipt Date: 20140515
  Transmission Date: 20141212
  Serious: Yes (Hospitalization, Other)
  Sender: FDA-Public Use
  Company Number: US-AMGEN INC.-USASP2014030425

PATIENT
  Age: 59 Year
  Sex: Female

DRUGS (6)
  1. PROLIA [Suspect]
     Indication: OSTEOPOROSIS POSTMENOPAUSAL
     Dosage: UNK
     Route: 065
     Dates: start: 201104
  2. CRESTOR [Concomitant]
     Indication: BLOOD CHOLESTEROL INCREASED
  3. NIASPAN [Concomitant]
     Indication: BLOOD CHOLESTEROL INCREASED
  4. ATORVASTATIN [Concomitant]
  5. VITAMIN D                          /00107901/ [Concomitant]
  6. BABY ASPIRIN [Concomitant]
     Dosage: UNK UNK, QD

REACTIONS (12)
  - Nervous system disorder [Unknown]
  - Dysarthria [Unknown]
  - Urinary incontinence [Unknown]
  - Balance disorder [Unknown]
  - Blood pressure increased [Recovered/Resolved]
  - Weight decreased [Unknown]
  - Aneurysm ruptured [Unknown]
  - Aneurysm [Unknown]
  - Diarrhoea [Not Recovered/Not Resolved]
  - Memory impairment [Unknown]
  - Vitamin D decreased [Recovered/Resolved]
  - Fatigue [Not Recovered/Not Resolved]
